FAERS Safety Report 16726988 (Version 2)
Quarter: 2019Q4

REPORT INFORMATION
  Report Type: Report from Study
  Country: None (occurrence: US)
  Receive Date: 20190821
  Receipt Date: 20191112
  Transmission Date: 20200122
  Serious: Yes (Other)
  Sender: FDA-Public Use
  Company Number: US-ABBVIE-19K-163-2843130-00

PATIENT
  Age: 50 Year
  Sex: Male
  Weight: 61.29 kg

DRUGS (1)
  1. HUMIRA [Suspect]
     Active Substance: ADALIMUMAB
     Indication: PSORIASIS
     Route: 058
     Dates: start: 2014

REACTIONS (6)
  - Mobility decreased [Not Recovered/Not Resolved]
  - Tendon rupture [Not Recovered/Not Resolved]
  - Nerve compression [Unknown]
  - Nerve injury [Unknown]
  - Peroneal nerve palsy [Unknown]
  - Mobility decreased [Unknown]

NARRATIVE: CASE EVENT DATE: 201904
